FAERS Safety Report 13447140 (Version 2)
Quarter: 2017Q2

REPORT INFORMATION
  Report Type: Report from Study
  Country: AR (occurrence: AR)
  Receive Date: 20170417
  Receipt Date: 20170519
  Transmission Date: 20170830
  Serious: Yes (Life-Threatening, Other)
  Sender: FDA-Public Use
  Company Number: PHHY2017AR056623

PATIENT
  Age: 76 Year
  Sex: Female

DRUGS (3)
  1. DIOVAN [Suspect]
     Active Substance: VALSARTAN
     Indication: PRODUCT USED FOR UNKNOWN INDICATION
     Dosage: 80 OT (UNITS NOT REPORTED), QD
     Route: 065
  2. MORPHINE [Concomitant]
     Active Substance: MORPHINE
     Indication: PRODUCT USED FOR UNKNOWN INDICATION
     Route: 065
  3. DIOVAN [Suspect]
     Active Substance: VALSARTAN
     Dosage: 2 DF (80 (UNITS NOT REPORTED)), QD
     Route: 065

REACTIONS (24)
  - Seizure [Unknown]
  - Dyspnoea [Unknown]
  - Breast injury [Unknown]
  - Nasal oedema [Unknown]
  - Mouth swelling [Unknown]
  - Cardiac failure [Unknown]
  - Hypoxia [Unknown]
  - Visual impairment [Unknown]
  - Limb injury [Unknown]
  - Road traffic accident [Unknown]
  - Facial pain [Unknown]
  - Oral pain [Unknown]
  - Eye swelling [Unknown]
  - Gangrene [Unknown]
  - Venous occlusion [Unknown]
  - Injury [Unknown]
  - Foot fracture [Unknown]
  - Cardiac arrest [Unknown]
  - Hypersensitivity [Unknown]
  - Swelling face [Unknown]
  - Poisoning [Unknown]
  - Pericardial effusion [Unknown]
  - Abasia [Unknown]
  - Rib fracture [Unknown]

NARRATIVE: CASE EVENT DATE: 201608
